FAERS Safety Report 15049912 (Version 1)
Quarter: 2018Q2

REPORT INFORMATION
  Report Type: Report from Study
  Country: US (occurrence: US)
  Receive Date: 20180622
  Receipt Date: 20180622
  Transmission Date: 20180711
  Serious: Yes (Hospitalization)
  Sender: FDA-Public Use
  Company Number: US-ROCHE-2143049

PATIENT
  Age: 82 Year
  Sex: Male
  Weight: 87.17 kg

DRUGS (1)
  1. ESBRIET [Suspect]
     Active Substance: PIRFENIDONE
     Indication: IDIOPATHIC PULMONARY FIBROSIS
     Dosage: 3 PILLS THREE TIMES A DAY WITH MEALS
     Route: 048
     Dates: start: 2018, end: 20180531

REACTIONS (1)
  - Volvulus [Not Recovered/Not Resolved]

NARRATIVE: CASE EVENT DATE: 20180531
